FAERS Safety Report 8152660-X (Version None)
Quarter: 2012Q1

REPORT INFORMATION
  Report Type: 
  Country: None (occurrence: None)
  Receive Date: 20120221
  Receipt Date: 20120213
  Transmission Date: 20120608
  Serious: Yes (Other)
  Sender: FDA-Public Use
  Company Number: PHHY2012ES012102

PATIENT
  Age: 73 Year
  Sex: Female

DRUGS (3)
  1. SINTROM [Interacting]
     Dates: start: 20100101
  2. LEVOFLOXACIN [Suspect]
     Indication: RESPIRATORY TRACT INFECTION
     Dosage: 500 MG, QD
     Route: 048
     Dates: start: 20110104, end: 20110113
  3. TOSEINA [Concomitant]
     Indication: RESPIRATORY TRACT INFECTION
     Dosage: 30 MG, TID
     Route: 048
     Dates: start: 20110104, end: 20110101

REACTIONS (3)
  - INTERNATIONAL NORMALISED RATIO INCREASED [None]
  - CONTUSION [None]
  - DRUG INTERACTION [None]
